FAERS Safety Report 10368927 (Version 1)
Quarter: 2014Q3

REPORT INFORMATION
  Report Type: Spontaneous
  Country: US (occurrence: US)
  Receive Date: 20140807
  Receipt Date: 20140807
  Transmission Date: 20150326
  Serious: Yes (Hospitalization)
  Sender: FDA-Public Use
  Company Number: US-B.I. PHARMACEUTICALS,INC./RIDGEFIELD-2014-BI-35800BP

PATIENT
  Age: 76 Year
  Sex: Female

DRUGS (1)
  1. SPIRIVA [Suspect]
     Active Substance: TIOTROPIUM BROMIDE MONOHYDRATE
     Indication: CHRONIC OBSTRUCTIVE PULMONARY DISEASE
     Dosage: 18 MCG
     Route: 055

REACTIONS (10)
  - Dyspnoea [Unknown]
  - Peripheral swelling [Recovered/Resolved]
  - Aphagia [Recovered/Resolved]
  - Pneumonia [Recovered/Resolved]
  - Abasia [Recovered/Resolved]
  - Myocardial infarction [Recovered/Resolved]
  - Electrolyte imbalance [Recovered/Resolved]
  - Mouth ulceration [Recovered/Resolved]
  - Arterial occlusive disease [Recovered/Resolved]
  - Clostridium difficile infection [Recovered/Resolved]

NARRATIVE: CASE EVENT DATE: 2011
